FAERS Safety Report 6072087-4 (Version None)
Quarter: 2009Q1

REPORT INFORMATION
  Report Type: 
  Country: None (occurrence: None)
  Receive Date: 20090210
  Receipt Date: 20090205
  Transmission Date: 20090719
  Serious: Yes (Hospitalization)
  Sender: FDA-Public Use
  Company Number: US-BRISTOL-MYERS SQUIBB COMPANY-14495899

PATIENT
  Age: 55 Year
  Sex: Male

DRUGS (2)
  1. COUMADIN [Suspect]
     Indication: THROMBOSIS PROPHYLAXIS
     Dates: start: 20081001
  2. WARFARIN [Suspect]
     Indication: THROMBOSIS PROPHYLAXIS
     Dosage: INTERRUPTED FOR 2 WEEKS IN NOV08,RESTARTED 1MG/D IN NOV08,CHANGED TO 2MG/D ON UNSPECIFIED DATE 2008
     Dates: start: 20081001

REACTIONS (6)
  - AGITATION [None]
  - BLOOD URINE PRESENT [None]
  - HAEMATOMA [None]
  - HAEMORRHAGE [None]
  - MEDICATION ERROR [None]
  - PAIN [None]
